FAERS Safety Report 7284910-6 (Version None)
Quarter: 2011Q1

REPORT INFORMATION
  Report Type: 
  Country: None (occurrence: None)
  Receive Date: 20110210
  Receipt Date: 20101227
  Transmission Date: 20110831
  Serious: Yes (Hospitalization, Other)
  Sender: FDA-Public Use
  Company Number: US-BAYER-201035888NA

PATIENT
  Sex: Female
  Weight: 106.36 kg

DRUGS (10)
  1. DONNATAL [Concomitant]
     Indication: ABDOMINAL PAIN
     Dosage: 1 NOT APPL., PRN
     Route: 048
     Dates: start: 20090624
  2. CHOLESTYRAMINE [Concomitant]
     Dosage: UNK
     Dates: start: 20090901
  3. DOXYCYCLINE [Concomitant]
     Indication: BRONCHITIS
     Dosage: 100 MG, BID
     Dates: start: 20090624
  4. TRICOR [Concomitant]
     Dosage: 145 MG, UNK
     Dates: start: 20080421
  5. TRICOR [Concomitant]
     Dosage: 145 MG, UNK
     Dates: start: 20081129
  6. TRICOR [Concomitant]
     Indication: BLOOD CHOLESTEROL INCREASED
     Dosage: 145 MG, QD
     Route: 048
  7. TRICOR [Concomitant]
     Dosage: 145 MG, UNK
     Dates: start: 20081021
  8. CHANTIX [Concomitant]
     Indication: EX-TOBACCO USER
  9. SINGULAIR [Concomitant]
     Indication: MULTIPLE ALLERGIES
     Dosage: 10 MG, QD
     Route: 048
     Dates: start: 20090624
  10. OCELLA [Suspect]
     Indication: PRODUCT USED FOR UNKNOWN INDICATION
     Dosage: UNK UNK, QD
     Route: 048
     Dates: start: 20081001, end: 20090901

REACTIONS (7)
  - POST GASTRIC SURGERY SYNDROME [None]
  - VOMITING [None]
  - CHOLELITHIASIS [None]
  - PAIN [None]
  - DISCOMFORT [None]
  - CHOLECYSTITIS CHRONIC [None]
  - ABDOMINAL PAIN UPPER [None]
